FAERS Safety Report 9767876 (Version 1)
Quarter: 2013Q4

REPORT INFORMATION
  Report Type: Spontaneous
  Country: US (occurrence: None)
  Receive Date: 20131213
  Receipt Date: 20131213
  Transmission Date: 20140711
  Serious: Yes (Hospitalization)
  Sender: FDA-Public Use
  Company Number: UCM201312-000092

PATIENT
  Age: 47 Year
  Sex: Female
  Weight: 49.9 kg

DRUGS (4)
  1. AMLODIPINE (AMLODIPINE) (AMLODIPINE) [Suspect]
  2. ETHANOL (ETHANOL) (ETHANOL) [Suspect]
  3. ZIPRASIDONE (ZIPRASIDONE) (ZIPRASIDONE) [Concomitant]
  4. PREGABALIN (PREGABALIN) (PREGABALIN) [Concomitant]

REACTIONS (12)
  - Shock [None]
  - Anion gap [None]
  - Metabolic acidosis [None]
  - Haemodynamic instability [None]
  - Pleural effusion [None]
  - Nodal rhythm [None]
  - Toxicity to various agents [None]
  - Muscle contractions involuntary [None]
  - Tongue disorder [None]
  - Feeling hot [None]
  - Anxiety [None]
  - Tachycardia [None]
